FAERS Safety Report 4937038-1 (Version None)
Quarter: 2006Q1

REPORT INFORMATION
  Report Type: 
  Country: None (occurrence: None)
  Receive Date: 20060309
  Receipt Date: 20051005
  Transmission Date: 20060701
  Serious: Yes (Hospitalization, Disabling, Other)
  Sender: FDA-Public Use
  Company Number: US-MERCK-0510USA04491

PATIENT
  Age: 57 Year
  Sex: Male
  Weight: 87 kg

DRUGS (7)
  1. VIOXX [Suspect]
     Indication: ARTHRITIS
     Route: 048
     Dates: start: 20031201, end: 20040930
  2. VIOXX [Suspect]
     Indication: ANKYLOSING SPONDYLITIS
     Route: 048
     Dates: start: 20031201, end: 20040930
  3. MONOPRIL [Concomitant]
     Route: 065
  4. DILTIAZEM HCL [Concomitant]
     Route: 065
  5. PRILOSEC [Concomitant]
     Route: 065
  6. ASPIRIN [Concomitant]
     Route: 065
  7. VITAMINS (UNSPECIFIED) [Concomitant]
     Route: 065

REACTIONS (9)
  - ANKYLOSING SPONDYLITIS [None]
  - ARTERIOSCLEROSIS [None]
  - BACK DISORDER [None]
  - DIZZINESS [None]
  - ERECTILE DYSFUNCTION [None]
  - MACULAR DEGENERATION [None]
  - RETINAL ARTERY OCCLUSION [None]
  - SURGERY [None]
  - TRANSAMINASES INCREASED [None]
